FAERS Safety Report 4284528-3 (Version None)
Quarter: 2004Q1

REPORT INFORMATION
  Report Type: 
  Country: None (occurrence: None)
  Receive Date: 20040130
  Receipt Date: 20040122
  Transmission Date: 20041129
  Serious: No
  Sender: FDA-Public Use
  Company Number: 2003AP04530

PATIENT
  Age: 76 Year
  Sex: Male

DRUGS (5)
  1. ZOLADEX [Suspect]
     Indication: PROSTATE CANCER
     Dosage: 3.6 MG Q4WK SQ
     Route: 058
     Dates: start: 20020615, end: 20020907
  2. ZOLADEX [Suspect]
     Indication: PROSTATE CANCER
     Dosage: 10.8 MG Q3MO SQ
     Route: 058
     Dates: start: 20021005
  3. VELONICA [Suspect]
     Indication: PROSTATE CANCER
     Dosage: 100 MG DAILY PO
     Route: 048
     Dates: start: 20020530, end: 20031115
  4. ASPIRIN [Concomitant]
  5. KISHILINON [Concomitant]

REACTIONS (3)
  - GASTRITIS [None]
  - HYPERLIPIDAEMIA [None]
  - NEPHROTIC SYNDROME [None]
